FAERS Safety Report 25896245 (Version 2)
Quarter: 2025Q4

REPORT INFORMATION
  Report Type: Spontaneous
  Country: US (occurrence: US)
  Receive Date: 20251008
  Receipt Date: 20251217
  Transmission Date: 20260118
  Serious: No
  Sender: VERTEX
  Company Number: US-VERTEX PHARMACEUTICALS-2025-016740

PATIENT
  Sex: Female

DRUGS (1)
  1. ALYFTREK [Suspect]
     Active Substance: DEUTIVACAFTOR\TEZACAFTOR\VANZACAFTOR
     Indication: Cystic fibrosis
     Dosage: VANZACAFTOR/TEZACAFTOR/DEUTIVACAFTOR
     Route: 061

REACTIONS (2)
  - Blood thyroid stimulating hormone increased [Unknown]
  - Hypothyroidism [Unknown]
